FAERS Safety Report 13490874 (Version 1)
Quarter: 2017Q2

REPORT INFORMATION
  Report Type: Spontaneous
  Country: US (occurrence: US)
  Receive Date: 20170427
  Receipt Date: 20170427
  Transmission Date: 20170830
  Serious: No
  Sender: FDA-Public Use
  Company Number: US-ELI_LILLY_AND_COMPANY-US201704009492

PATIENT
  Sex: Male

DRUGS (4)
  1. HUMULIN R [Suspect]
     Active Substance: INSULIN HUMAN
     Dosage: 35 U, EACH EVENING
     Route: 065
  2. HUMULIN R [Suspect]
     Active Substance: INSULIN HUMAN
     Indication: PRODUCT USED FOR UNKNOWN INDICATION
     Dosage: 65 U, EACH MORNING
     Route: 065
  3. HUMULIN R [Suspect]
     Active Substance: INSULIN HUMAN
     Dosage: 35 U, EACH EVENING
     Route: 065
  4. HUMULIN R [Suspect]
     Active Substance: INSULIN HUMAN
     Dosage: 35 U, EACH EVENING
     Route: 065

REACTIONS (2)
  - Incorrect dose administered [Unknown]
  - Wrong technique in product usage process [Unknown]
